FAERS Safety Report 7970987-9 (Version None)
Quarter: 2011Q4

REPORT INFORMATION
  Report Type: 
  Country: None (occurrence: None)
  Receive Date: 20111212
  Receipt Date: 20101214
  Transmission Date: 20120403
  Serious: No
  Sender: FDA-Public Use
  Company Number: US-COVIDIEN/TYCO HEALTHCARE/MALLINCKRODT-T201002436

PATIENT
  Sex: Female
  Weight: 56.689 kg

DRUGS (5)
  1. MEDROL [Suspect]
     Dosage: UNK
  2. STRATTERA [Suspect]
     Dosage: 80 MG, UNK
     Dates: start: 20101210, end: 20101211
  3. STRATTERA [Suspect]
     Dosage: ^TOOK 1/2 OF HER MEDICATION^
     Dates: start: 20101212, end: 20101212
  4. STRATTERA [Suspect]
     Indication: ATTENTION DEFICIT/HYPERACTIVITY DISORDER
     Dosage: 50 MG, UNK
     Dates: end: 20101210
  5. OPTIMARK [Suspect]
     Indication: NUCLEAR MAGNETIC RESONANCE IMAGING
     Dosage: 20 ML, SINGLE
     Route: 042
     Dates: start: 20101209, end: 20101209

REACTIONS (4)
  - PARAESTHESIA [None]
  - RASH [None]
  - SENSATION OF FOREIGN BODY [None]
  - HYPOAESTHESIA [None]
